FAERS Safety Report 23388113 (Version 1)
Quarter: 2024Q1

REPORT INFORMATION
  Report Type: Spontaneous
  Country: EG (occurrence: EG)
  Receive Date: 20240110
  Receipt Date: 20240110
  Transmission Date: 20240409
  Serious: Yes (Death, Hospitalization)
  Sender: FDA-Public Use
  Company Number: EG-PFIZER INC-PV202400001758

PATIENT
  Age: 19 Day
  Sex: Female

DRUGS (3)
  1. MEROPENEM [Suspect]
     Active Substance: MEROPENEM
     Dosage: EVERY 8 HOURS
     Route: 042
     Dates: start: 20231215, end: 20231220
  2. VANCOMYCIN HYDROCHLORIDE [Suspect]
     Active Substance: VANCOMYCIN HYDROCHLORIDE
     Dosage: EVERY 8 HOURS
     Route: 042
     Dates: start: 20231218, end: 20231218
  3. AMIKACIN [Concomitant]
     Active Substance: AMIKACIN
     Dosage: UNK

REACTIONS (1)
  - Thrombocytopenia neonatal [Fatal]

NARRATIVE: CASE EVENT DATE: 20231215
